FAERS Safety Report 9346999 (Version 3)
Quarter: 2013Q4

REPORT INFORMATION
  Report Type: Report from Study
  Country: DE (occurrence: DE)
  Receive Date: 20130613
  Receipt Date: 20131219
  Transmission Date: 20140711
  Serious: Yes (Life-Threatening, Hospitalization)
  Sender: FDA-Public Use
  Company Number: PHHO2013DE007760

PATIENT
  Sex: 0

DRUGS (10)
  1. METOPROLOL [Suspect]
     Indication: HYPERTENSION
     Dosage: 47.5 MG, QD
     Route: 048
     Dates: start: 201207, end: 20130604
  2. BLINDED ACZ885 [Suspect]
     Indication: CARDIAC FAILURE
     Dosage: DOUBLE BLINDED
     Route: 058
     Dates: start: 20121121
  3. BLINDED PLACEBO [Suspect]
     Indication: CARDIAC FAILURE
     Dosage: DOUBLE BLINDED
     Route: 058
     Dates: start: 20121121
  4. RAMIPRIL [Concomitant]
     Indication: HYPERTENSION
     Dosage: 5 MG, QD
     Route: 048
     Dates: start: 201207
  5. RAMIPRIL [Concomitant]
     Dosage: 2.5 MG, TID
     Route: 048
     Dates: start: 201207
  6. ASS [Concomitant]
     Indication: PROPHYLAXIS
     Dosage: 100 MG, QD
     Route: 048
  7. TORASEMID [Concomitant]
     Indication: CORONARY ARTERY DISEASE
     Dosage: 50 MG, QD
     Route: 048
     Dates: end: 20130604
  8. TORASEMID [Concomitant]
     Dosage: 50 MG MORNING AND 25 MG AT NOON
     Route: 048
     Dates: end: 20130604
  9. TAMSULOSIN [Concomitant]
     Indication: PROSTATIC ADENOMA
     Dosage: 0.4 MG, QD
     Route: 048
  10. DOXAZOSIN [Concomitant]
     Indication: HYPERTENSION
     Dosage: 2 MG, QD
     Route: 048

REACTIONS (2)
  - Cardiac failure [Recovered/Resolved]
  - Bradycardia [Recovered/Resolved]
